FAERS Safety Report 12547029 (Version 1)
Quarter: 2016Q3

REPORT INFORMATION
  Report Type: Spontaneous
  Country: US (occurrence: US)
  Receive Date: 20160711
  Receipt Date: 20160711
  Transmission Date: 20161109
  Serious: Yes (Life-Threatening, Hospitalization, Other)
  Sender: FDA-Public Use
  Company Number: US-BRISTOL-MYERS SQUIBB COMPANY-BMS-2016-055932

PATIENT
  Age: 8 Decade
  Sex: Male

DRUGS (1)
  1. YERVOY [Suspect]
     Active Substance: IPILIMUMAB
     Indication: MALIGNANT MELANOMA
     Dosage: 2
     Route: 042

REACTIONS (4)
  - Cardiac pacemaker insertion [Unknown]
  - Gastrointestinal tube insertion [Unknown]
  - Autonomic nervous system imbalance [Unknown]
  - Hypophysitis [Unknown]
